FAERS Safety Report 15049246 (Version 1)
Quarter: 2018Q2

REPORT INFORMATION
  Report Type: Spontaneous
  Country: US (occurrence: US)
  Receive Date: 20180622
  Receipt Date: 20180622
  Transmission Date: 20180711
  Serious: Yes (Life-Threatening, Hospitalization, Other)
  Sender: FDA-Public Use
  Company Number: US-AUROBINDO-AUR-APL-2018-032247

PATIENT
  Age: 32 Year
  Sex: Male

DRUGS (1)
  1. LOPERAMIDE TABLET [Suspect]
     Active Substance: LOPERAMIDE
     Indication: DRUG USE DISORDER
     Dosage: EVERY OTHER DAY FOR SEVERAL YEARS
     Route: 065

REACTIONS (5)
  - Drug abuse [Unknown]
  - Cardiotoxicity [Recovered/Resolved]
  - Constipation [Recovered/Resolved]
  - Atrioventricular block first degree [Recovered/Resolved]
  - QRS axis abnormal [Recovered/Resolved]
